FAERS Safety Report 8049052-0 (Version None)
Quarter: 2012Q1

REPORT INFORMATION
  Report Type: 
  Country: None (occurrence: None)
  Receive Date: 20120117
  Receipt Date: 20120109
  Transmission Date: 20120608
  Serious: Yes (Hospitalization)
  Sender: FDA-Public Use
  Company Number: US-BAYER-2010-002176

PATIENT
  Age: 38 Year
  Sex: Female
  Weight: 72.562 kg

DRUGS (10)
  1. NAPROXEN [Concomitant]
  2. YASMIN [Suspect]
     Dosage: UNK
     Dates: start: 20060101, end: 20071101
  3. OXYCODONE HCL AND ACETAMINOPHEN [Concomitant]
  4. BUPROPION HYDROCHLORIDE [Concomitant]
  5. OMEPRAZOLE [Concomitant]
  6. BUTALBITAL ACETAMINOPHEN AND CAFFEINE [Concomitant]
  7. CYCLOBENZAPRINE [Concomitant]
  8. AMOXICILINA CLAV [Concomitant]
  9. WELLBUTRIN [Concomitant]
  10. METOPROLOL TARTRATE [Concomitant]
     Dosage: 25 MG, DAILY
     Route: 048
     Dates: start: 20000101

REACTIONS (4)
  - PULMONARY EMBOLISM [None]
  - DEEP VEIN THROMBOSIS [None]
  - CHOLECYSTITIS CHRONIC [None]
  - GALLBLADDER INJURY [None]
